FAERS Safety Report 17196813 (Version 2)
Quarter: 2020Q1

REPORT INFORMATION
  Report Type: Spontaneous
  Country: US (occurrence: US)
  Receive Date: 20191224
  Receipt Date: 20200108
  Transmission Date: 20200409
  Serious: No
  Sender: FDA-Public Use
  Company Number: US-LUNDBECK-DKLU3009221

PATIENT
  Age: 17 Year
  Sex: Male

DRUGS (4)
  1. EPIDIOLEX [Interacting]
     Active Substance: CANNABIDIOL
     Indication: PRODUCT USED FOR UNKNOWN INDICATION
     Route: 065
  2. ONFI [Interacting]
     Active Substance: CLOBAZAM
     Route: 065
     Dates: start: 201912
  3. ONFI [Interacting]
     Active Substance: CLOBAZAM
     Route: 065
     Dates: start: 201912
  4. ONFI [Suspect]
     Active Substance: CLOBAZAM
     Indication: PRODUCT USED FOR UNKNOWN INDICATION
     Route: 065
     Dates: end: 201912

REACTIONS (5)
  - Drug interaction [Unknown]
  - Prescribed overdose [Unknown]
  - Anticonvulsant drug level increased [Unknown]
  - Drug withdrawal syndrome [Unknown]
  - Somnolence [Unknown]

NARRATIVE: CASE EVENT DATE: 201912
